FAERS Safety Report 5401175-8 (Version None)
Quarter: 2007Q3

REPORT INFORMATION
  Report Type: 
  Country: None (occurrence: None)
  Receive Date: 20070731
  Receipt Date: 20070724
  Transmission Date: 20080115
  Serious: Yes (Hospitalization)
  Sender: FDA-Public Use
  Company Number: US-AMGEN-US189937

PATIENT
  Sex: Female

DRUGS (5)
  1. PANITUMUMAB [Suspect]
     Indication: COLORECTAL CANCER
     Route: 042
     Dates: start: 20060619, end: 20060724
  2. OXALIPLATIN [Suspect]
     Route: 042
     Dates: end: 20060725
  3. FLUOROURACIL [Suspect]
     Route: 042
     Dates: end: 20060725
  4. LEUCOVORIN CALCIUM [Suspect]
     Route: 042
     Dates: end: 20060725
  5. AVASTIN [Concomitant]
     Route: 042
     Dates: end: 20060725

REACTIONS (3)
  - DEHYDRATION [None]
  - HYPERNATRAEMIA [None]
  - JUGULAR VEIN THROMBOSIS [None]
